FAERS Safety Report 16414487 (Version 1)
Quarter: 2019Q2

REPORT INFORMATION
  Report Type: Spontaneous
  Country: SE (occurrence: SE)
  Receive Date: 20190611
  Receipt Date: 20190611
  Transmission Date: 20190711
  Serious: Yes (Other)
  Sender: FDA-Public Use
  Company Number: PHHY2019SE128643

PATIENT
  Age: 38 Year
  Sex: Female

DRUGS (9)
  1. CARBAMAZEPINE. [Concomitant]
     Active Substance: CARBAMAZEPINE
     Indication: EPILEPSY
     Dosage: UNK
     Route: 065
  2. BOTULINUM TOXIN TYPE A [Suspect]
     Active Substance: BOTULINUM TOXIN TYPE A
     Dosage: UNK UNK, ONCE/SINGLE
     Route: 030
     Dates: start: 20170413, end: 20170413
  3. BACLOFEN. [Concomitant]
     Active Substance: BACLOFEN
     Indication: MUSCLE SPASTICITY
     Dosage: UNK
     Route: 065
  4. BOTULINUM TOXIN TYPE A [Suspect]
     Active Substance: BOTULINUM TOXIN TYPE A
     Dosage: UNK UNK, ONCE/SINGLE
     Route: 030
     Dates: start: 2016, end: 2016
  5. BOTULINUM TOXIN TYPE A [Suspect]
     Active Substance: BOTULINUM TOXIN TYPE A
     Dosage: UNK UNK, ONCE/SINGLE
     Route: 030
     Dates: start: 20190212, end: 20190212
  6. LEVETIRACETAM. [Suspect]
     Active Substance: LEVETIRACETAM
     Indication: EPILEPSY
     Dosage: UNK
     Route: 065
  7. BOTULINUM TOXIN TYPE A [Suspect]
     Active Substance: BOTULINUM TOXIN TYPE A
     Indication: MUSCLE SPASTICITY
     Dosage: UNK UNK, ONCE/SINGLE
     Route: 030
     Dates: start: 20150929, end: 20150929
  8. BOTULINUM TOXIN TYPE A [Suspect]
     Active Substance: BOTULINUM TOXIN TYPE A
     Dosage: UNK UNK, ONCE/SINGLE
     Route: 030
     Dates: start: 2017, end: 2017
  9. BOTULINUM TOXIN TYPE A [Suspect]
     Active Substance: BOTULINUM TOXIN TYPE A
     Dosage: UNK UNK, ONCE/SINGLE
     Route: 030
     Dates: start: 20170905, end: 20170905

REACTIONS (4)
  - Condition aggravated [Not Recovered/Not Resolved]
  - Fatigue [Unknown]
  - Dysphagia [Recovering/Resolving]
  - Body temperature decreased [Recovered/Resolved]

NARRATIVE: CASE EVENT DATE: 2016
